FAERS Safety Report 11117267 (Version 2)
Quarter: 2015Q2

REPORT INFORMATION
  Report Type: Report from Study
  Country: US (occurrence: US)
  Receive Date: 20150515
  Receipt Date: 20150522
  Transmission Date: 20150821
  Serious: Yes (Hospitalization, Other)
  Sender: FDA-Public Use
  Company Number: US-GILEAD-2015-0153413

PATIENT
  Age: 79 Year
  Sex: Male

DRUGS (1)
  1. IDELALISIB [Suspect]
     Active Substance: IDELALISIB
     Indication: LYMPHOMA
     Dosage: 150 MG, BID
     Route: 048
     Dates: start: 201503

REACTIONS (14)
  - Rash [Recovering/Resolving]
  - Pneumonia [Unknown]
  - Dry skin [Unknown]
  - Blood potassium decreased [Unknown]
  - Incontinence [Unknown]
  - Dysphagia [Recovering/Resolving]
  - Gait disturbance [Unknown]
  - Cough [Not Recovered/Not Resolved]
  - Pollakiuria [Unknown]
  - Decreased appetite [Recovering/Resolving]
  - Disorientation [Recovering/Resolving]
  - Feeling abnormal [Unknown]
  - White blood cell count decreased [Unknown]
  - Asthenia [Not Recovered/Not Resolved]

NARRATIVE: CASE EVENT DATE: 20150504
